FAERS Safety Report 9134547 (Version 2)
Quarter: 2013Q1

REPORT INFORMATION
  Report Type: Spontaneous
  Country: FR (occurrence: FR)
  Receive Date: 20130304
  Receipt Date: 20130315
  Transmission Date: 20140127
  Serious: Yes (Other)
  Sender: FDA-Public Use
  Company Number: FR-JNJFOC-20130212490

PATIENT
  Age: 54 Year
  Sex: Female

DRUGS (1)
  1. XEPLION [Suspect]
     Indication: PSYCHOTIC DISORDER
     Route: 030
     Dates: start: 20130213

REACTIONS (8)
  - Depression [Unknown]
  - Glare [Unknown]
  - Vision blurred [Unknown]
  - Dizziness [Unknown]
  - Vertigo [Unknown]
  - Nausea [Unknown]
  - Hyperhidrosis [Unknown]
  - Palpitations [Unknown]
